FAERS Safety Report 8871773 (Version 1)
Quarter: 2012Q4

REPORT INFORMATION
  Report Type: 
  Country: US (occurrence: US)
  Receive Date: 20121023
  Receipt Date: 20121023
  Transmission Date: 20130627
  Serious: No
  Sender: FDA-Public Use
  Company Number: US-ASTELLAS-2012US006445

PATIENT
  Sex: Female
  Weight: 72 kg

DRUGS (3)
  1. PROGRAF [Suspect]
     Indication: RENAL TRANSPLANT
     Dosage: 5 mg, bid
     Route: 048
     Dates: start: 200909
  2. MYFORTIC [Concomitant]
     Indication: RENAL TRANSPLANT
     Dosage: UNK
     Route: 065
  3. GLIPIZIDE [Concomitant]
     Indication: DIABETES MELLITUS
     Dosage: UNK
     Route: 065

REACTIONS (2)
  - Urine abnormality [Not Recovered/Not Resolved]
  - Renal impairment [Not Recovered/Not Resolved]
